FAERS Safety Report 15261615 (Version 1)
Quarter: 2018Q3

REPORT INFORMATION
  Report Type: Report from Study
  Country: US (occurrence: US)
  Receive Date: 20180809
  Receipt Date: 20180809
  Transmission Date: 20181010
  Serious: Yes (Death, Hospitalization, Other)
  Sender: FDA-Public Use
  Company Number: US-ASTRAZENECA-2018SF01134

PATIENT
  Sex: Female

DRUGS (1)
  1. SEROQUEL [Suspect]
     Active Substance: QUETIAPINE FUMARATE
     Indication: INSOMNIA
     Route: 048

REACTIONS (8)
  - Traumatic intracranial haemorrhage [Unknown]
  - Product use in unapproved indication [Unknown]
  - Death [Fatal]
  - Off label use [Unknown]
  - Fall [Unknown]
  - Head injury [Unknown]
  - Confusional state [Unknown]
  - Dementia [Unknown]
